FAERS Safety Report 6519847-0 (Version None)
Quarter: 2009Q4

REPORT INFORMATION
  Report Type: 
  Country: None (occurrence: None)
  Receive Date: 20091228
  Receipt Date: 20091228
  Transmission Date: 20100525
  Serious: Yes (Other)
  Sender: FDA-Public Use
  Company Number: None

PATIENT
  Age: 59 Year
  Sex: Female
  Weight: 81.6475 kg

DRUGS (2)
  1. LEVAQUIN [Suspect]
     Indication: BRONCHITIS
     Dosage: 750 MG. ONE PER DAY
     Dates: start: 20091208, end: 20091223
  2. LEVAQUIN [Suspect]
     Indication: SINUSITIS
     Dosage: 750 MG. ONE PER DAY
     Dates: start: 20091208, end: 20091223

REACTIONS (7)
  - ERYTHEMA [None]
  - FEELING HOT [None]
  - HYPOAESTHESIA [None]
  - MUSCULOSKELETAL STIFFNESS [None]
  - OEDEMA PERIPHERAL [None]
  - PAIN [None]
  - PAIN IN EXTREMITY [None]
